FAERS Safety Report 10050558 (Version 1)
Quarter: 2014Q2

REPORT INFORMATION
  Report Type: Spontaneous
  Country: US (occurrence: US)
  Receive Date: 20140401
  Receipt Date: 20140401
  Transmission Date: 20141212
  Serious: No
  Sender: FDA-Public Use
  Company Number: US-ASTRAZENECA-2013SE90177

PATIENT
  Age: 52 Year
  Sex: Female
  Weight: 113.4 kg

DRUGS (4)
  1. NEXIUM [Suspect]
     Indication: GASTROOESOPHAGEAL REFLUX DISEASE
     Route: 048
     Dates: start: 2007, end: 201311
  2. OMEPRAZOLE [Suspect]
     Indication: GASTROOESOPHAGEAL REFLUX DISEASE
     Dosage: GENERIC, DAILY
     Route: 048
     Dates: start: 20131111
  3. DIOVAN [Concomitant]
     Indication: BLOOD URINE PRESENT
     Dosage: DAILY
     Route: 048
  4. LANTIS [Concomitant]
     Indication: DIABETES MELLITUS
     Dosage: 26 UNITS DAILY
     Route: 058

REACTIONS (7)
  - Dysphonia [Unknown]
  - Oropharyngeal pain [Not Recovered/Not Resolved]
  - Throat irritation [Not Recovered/Not Resolved]
  - Blood glucose abnormal [Not Recovered/Not Resolved]
  - Adverse event [Recovered/Resolved]
  - Eructation [Not Recovered/Not Resolved]
  - Drug ineffective [Not Recovered/Not Resolved]
